FAERS Safety Report 21779592 (Version 1)
Quarter: 2022Q4

REPORT INFORMATION
  Report Type: Spontaneous
  Country: CA (occurrence: CA)
  Receive Date: 20221226
  Receipt Date: 20221226
  Transmission Date: 20230113
  Serious: Yes (Other)
  Sender: FDA-Public Use
  Company Number: CA-ORGANON-O2212CAN001831

PATIENT
  Age: 50 Year
  Sex: Male

DRUGS (5)
  1. REMERON [Interacting]
     Active Substance: MIRTAZAPINE
     Indication: Major depression
     Dosage: 7.5 MILLIGRAM, 1 EVERY 1 DAYS
     Route: 065
  2. REMERON [Interacting]
     Active Substance: MIRTAZAPINE
     Dosage: 15.0 MILLIGRAM, 1 EVERY 1 DAYS
     Route: 065
  3. BREXPIPRAZOLE [Interacting]
     Active Substance: BREXPIPRAZOLE
     Indication: Major depression
     Dosage: 1.0 MILLIGRAM, 1 EVERY 1 DAYS
     Route: 065
  4. BREXPIPRAZOLE [Interacting]
     Active Substance: BREXPIPRAZOLE
     Dosage: 0.5 MILLIGRAM, 1 EVERY 1 DAYS
     Route: 065
  5. DULOXETINE HYDROCHLORIDE [Interacting]
     Active Substance: DULOXETINE HYDROCHLORIDE
     Indication: Back pain
     Dosage: 60.0 MILLIGRAM, 1 EVERY 1 DAYS
     Route: 065

REACTIONS (3)
  - Drug interaction [Recovered/Resolved]
  - Hypomania [Recovered/Resolved]
  - Withdrawal syndrome [Recovered/Resolved]
